FAERS Safety Report 5443148-5 (Version None)
Quarter: 2007Q3

REPORT INFORMATION
  Report Type: 
  Country: None (occurrence: None)
  Receive Date: 20070730
  Receipt Date: 20070103
  Transmission Date: 20080115
  Serious: Yes (Other)
  Sender: FDA-Public Use
  Company Number: 233452

PATIENT
  Age: 47 Year
  Sex: Female
  Weight: 90.7 kg

DRUGS (14)
  1. RITUXAN [Suspect]
     Indication: RHEUMATOID ARTHRITIS
     Dates: start: 20060915
  2. ZANTAC [Concomitant]
  3. HYDROXYZINE [Concomitant]
  4. PLAQUENIL [Concomitant]
  5. FOLIC ACID [Concomitant]
  6. BENADRYL [Concomitant]
  7. GABAPENTIN [Concomitant]
  8. AMBIEN CR [Concomitant]
  9. ESTRADIOL [Concomitant]
  10. TYLENOL (CAPLET) [Concomitant]
  11. TRIMETHOPRIM [Concomitant]
  12. ADVAIR DISKUS 100/50 [Concomitant]
  13. ZYLO (ZILEUTON) [Concomitant]
  14. OXYCODONE HCL [Concomitant]

REACTIONS (1)
  - PNEUMONIA [None]
